FAERS Safety Report 23459197 (Version 1)
Quarter: 2024Q1

REPORT INFORMATION
  Report Type: Spontaneous
  Country: DE (occurrence: DE)
  Receive Date: 20240131
  Receipt Date: 20240131
  Transmission Date: 20240409
  Serious: Yes (Other)
  Sender: FDA-Public Use
  Company Number: DE-ABBVIE-5447099

PATIENT
  Age: 42 Year
  Sex: Male

DRUGS (1)
  1. ADALIMUMAB [Suspect]
     Active Substance: ADALIMUMAB\ISOPROPYL ALCOHOL
     Indication: Crohn^s disease
     Dosage: UNK
     Route: 058
     Dates: start: 2014

REACTIONS (5)
  - Subileus [Not Recovered/Not Resolved]
  - Stenosis [Unknown]
  - Inflammation [Recovering/Resolving]
  - Drug specific antibody present [Unknown]
  - Drug level decreased [Unknown]
